FAERS Safety Report 7352068-0 (Version None)
Quarter: 2011Q1

REPORT INFORMATION
  Report Type: 
  Country: None (occurrence: None)
  Receive Date: 20110315
  Receipt Date: 20110310
  Transmission Date: 20110831
  Serious: No
  Sender: FDA-Public Use
  Company Number: US-PFIZER INC-2011053541

PATIENT
  Sex: Female
  Weight: 90.703 kg

DRUGS (7)
  1. DILTIAZEM [Concomitant]
     Indication: HEART RATE INCREASED
     Dosage: 300 MG, UNK
  2. ADVIL LIQUI-GELS [Suspect]
     Indication: PROCEDURAL PAIN
     Dosage: 400 MG, EVERY SIX TO SEVEN HOURS
     Route: 048
     Dates: start: 20110308, end: 20110309
  3. LISINOPRIL [Concomitant]
     Indication: HYPERTENSION
     Dosage: 40 MG, 1X/DAY
  4. PROPRANOLOL [Concomitant]
     Indication: HYPERTENSION
     Dosage: 80 MG, UNK
  5. PRILOSEC [Concomitant]
     Dosage: UNK
     Route: 048
  6. ERYTHROMYCIN [Suspect]
     Indication: PROCEDURAL PAIN
     Dosage: UNK
     Dates: start: 20100308, end: 20110309
  7. BUMETANIDE [Concomitant]
     Indication: DIURETIC THERAPY
     Dosage: 0.5 MG, UNK

REACTIONS (4)
  - ERYTHEMA [None]
  - FLUSHING [None]
  - RASH [None]
  - SKIN DISCOLOURATION [None]
